FAERS Safety Report 8455510-7 (Version None)
Quarter: 2012Q2

REPORT INFORMATION
  Report Type: 
  Country: None (occurrence: None)
  Receive Date: 20120621
  Receipt Date: 20120611
  Transmission Date: 20120825
  Serious: Yes (Hospitalization)
  Sender: FDA-Public Use
  Company Number: GB-JNJFOC-20120516548

PATIENT
  Sex: Male

DRUGS (2)
  1. SIMPONI [Suspect]
     Indication: RHEUMATOID ARTHRITIS
     Route: 058
     Dates: start: 20120101
  2. SIMPONI [Suspect]
     Route: 058
     Dates: start: 20120513, end: 20120501

REACTIONS (3)
  - GASTROENTERITIS [None]
  - PNEUMONIA [None]
  - DRUG INEFFECTIVE [None]
